FAERS Safety Report 21672192 (Version 8)
Quarter: 2023Q1

REPORT INFORMATION
  Report Type: Spontaneous
  Country: US (occurrence: US)
  Receive Date: 20221202
  Receipt Date: 20230215
  Transmission Date: 20230418
  Serious: No
  Sender: FDA-Public Use
  Company Number: US-PFIZER INC-202201337125

PATIENT
  Age: 12 Year
  Sex: Female
  Weight: 38.54 kg

DRUGS (3)
  1. GENOTROPIN [Suspect]
     Active Substance: SOMATROPIN
     Indication: Blood growth hormone decreased
     Dosage: UNK
  2. GENOTROPIN [Suspect]
     Active Substance: SOMATROPIN
     Dosage: UNK
  3. GENOTROPIN [Suspect]
     Active Substance: SOMATROPIN
     Dosage: 1.6 MG, DAILY
     Dates: start: 20210130

REACTIONS (6)
  - Drug dose omission by device [Unknown]
  - Expired device used [Unknown]
  - Device power source issue [Unknown]
  - Device mechanical issue [Unknown]
  - Device information output issue [Unknown]
  - Malaise [Unknown]

NARRATIVE: CASE EVENT DATE: 20220330
